FAERS Safety Report 7771529-3 (Version None)
Quarter: 2011Q3

REPORT INFORMATION
  Report Type: 
  Country: None (occurrence: None)
  Receive Date: 20110922
  Receipt Date: 20100527
  Transmission Date: 20111222
  Serious: Yes (Other)
  Sender: FDA-Public Use
  Company Number: US-ASTRAZENECA-2006UW27731

PATIENT
  Age: 20421 Day
  Sex: Male
  Weight: 110.7 kg

DRUGS (30)
  1. SEROQUEL [Suspect]
     Indication: BIPOLAR I DISORDER
     Dosage: 25 MG-200 MG, 200 MG 3 PILLS A DAY.
     Route: 048
     Dates: start: 20020322
  2. SEROQUEL [Suspect]
     Indication: DEPRESSION
     Dosage: 25 MG-200 MG, 200 MG 3 PILLS A DAY.
     Route: 048
     Dates: start: 20020322
  3. DIOVAN [Concomitant]
  4. SEROQUEL [Suspect]
     Dosage: 100 MG-400 MG
     Route: 048
     Dates: start: 20021001, end: 20041112
  5. CLONAZEPAM [Concomitant]
  6. PAXIL [Concomitant]
     Dosage: 20 MG-40 MG
     Dates: start: 20021001
  7. SEROQUEL [Suspect]
     Indication: SCHIZOPHRENIA
     Dosage: 25 MG-200 MG, 200 MG 3 PILLS A DAY.
     Route: 048
     Dates: start: 20020322
  8. CIPROFLOXACIN [Concomitant]
  9. RISPERDAL [Concomitant]
     Dosage: 1 MG - 3 MG
     Route: 048
  10. LEXAPRO [Suspect]
     Route: 065
  11. NEXIUM [Concomitant]
     Dates: start: 20021001
  12. RANITIDINE [Concomitant]
  13. TOPAMAX [Concomitant]
     Indication: NIGHTMARE
  14. KLONOPIN [Concomitant]
     Dosage: 2 MG 1 BID 1 AND 1/2 HS
     Dates: start: 20021001
  15. SEROQUEL [Suspect]
     Dosage: 100 MG-400 MG
     Route: 048
     Dates: start: 20021001, end: 20041112
  16. GEODON [Concomitant]
     Route: 048
     Dates: start: 20060421, end: 20070101
  17. IMIPRAMINE PALMATE [Concomitant]
     Route: 048
     Dates: start: 20040801, end: 20041201
  18. NIASPAN [Concomitant]
  19. ANDROGEL [Concomitant]
  20. ABILIFY [Concomitant]
     Dates: start: 20050620, end: 20050721
  21. NEURONTIN [Concomitant]
     Dosage: 300 MG- 1800 MG
     Dates: start: 20021001
  22. VITAMIN E [Concomitant]
  23. TRAZODONE HYDROCHLORIDE [Concomitant]
     Indication: INSOMNIA
     Dates: start: 20021001
  24. LIPITOR [Concomitant]
  25. AVANDAMET [Concomitant]
  26. PROTONIX [Concomitant]
     Route: 048
     Dates: start: 20021001
  27. SEROQUEL [Suspect]
     Dosage: 100 MG-400 MG
     Route: 048
     Dates: start: 20021001, end: 20041112
  28. INVEGA [Concomitant]
     Dates: start: 20070101, end: 20071001
  29. REMERON [Concomitant]
     Dates: start: 20030619
  30. VIAGRA [Concomitant]

REACTIONS (7)
  - HAEMOGLOBIN DECREASED [None]
  - ERECTILE DYSFUNCTION [None]
  - BLOOD CHOLESTEROL INCREASED [None]
  - DIABETES MELLITUS [None]
  - LIVER FUNCTION TEST ABNORMAL [None]
  - HYPERTRIGLYCERIDAEMIA [None]
  - WEIGHT INCREASED [None]
